FAERS Safety Report 4332367-7 (Version None)
Quarter: 2004Q2

REPORT INFORMATION
  Report Type: 
  Country: None (occurrence: None)
  Receive Date: 20040401
  Receipt Date: 20040323
  Transmission Date: 20050107
  Serious: Yes (Other)
  Sender: FDA-Public Use
  Company Number: JP-JNJFOC-20040305726

PATIENT

DRUGS (3)
  1. RISPERDAL [Suspect]
     Dosage: ORAL
     Route: 048
  2. PSYCHOTROPIC AGENTS (ANTIPSYCHOTICS) [Concomitant]
  3. VEGETAMIN (VEGETAMIN) [Concomitant]

REACTIONS (1)
  - TOXIC EPIDERMAL NECROLYSIS [None]
